FAERS Safety Report 9728067 (Version 2)
Quarter: 2014Q1

REPORT INFORMATION
  Report Type: Spontaneous
  Country: US (occurrence: US)
  Receive Date: 20131204
  Receipt Date: 20140107
  Transmission Date: 20141002
  Serious: Yes (Hospitalization, Other)
  Sender: FDA-Public Use
  Company Number: PHEH2013US024811

PATIENT
  Age: 55 Year
  Sex: Male
  Weight: 72 kg

DRUGS (34)
  1. GLEEVEC [Suspect]
     Dosage: 100 MG, BID
     Route: 048
     Dates: start: 20130911
  2. GLEEVEC [Suspect]
     Dosage: 400 MG, DAILY
     Route: 048
     Dates: start: 20130917
  3. GLEEVEC [Suspect]
     Dosage: 200 MG, DAILY
     Route: 048
     Dates: start: 20130930
  4. ZITHROMAX [Concomitant]
     Dosage: 1 DF, DAILY
     Route: 048
  5. BIOTENE [Concomitant]
     Dosage: UNK UKN, TID
     Route: 048
  6. POLYSPORIN [Concomitant]
     Dosage: UNK UKN, APPLY TO ABRASION AS NEEDED
  7. DULCOLAX [Concomitant]
     Indication: CONSTIPATION
     Dosage: 1 DF, PRN
     Route: 054
  8. ZYRTEC [Concomitant]
     Indication: RHINITIS
     Dosage: 1 DF, PRN
     Route: 048
  9. ZYRTEC [Concomitant]
     Indication: MULTIPLE ALLERGIES
  10. DAPSONE [Concomitant]
     Dosage: 1 DF, DAILY
     Route: 048
  11. DILAUDID [Concomitant]
     Indication: PAIN
     Dosage: 1 DF, PRN
     Route: 048
  12. HUMULIN N [Concomitant]
     Dosage: 7 U, UNK (7 UNITS INTO THE SKIN EVERY MORNING)
  13. HUMULIN N [Concomitant]
     Dosage: UNK U, TID (0-10 UNITS INTO THE SKIN THRICE DAILY)
  14. NOVOLIN N [Concomitant]
     Dosage: 7 U, UNK (7 UNITS INTO THE SKIN EVERY MORNING)
  15. NOVOLIN N [Concomitant]
     Dosage: UNK U, TID (0-10 UNITS INTO SKIN THRICE DAILY)
  16. ATIVAN [Concomitant]
     Indication: ANXIETY
     Dosage: 1 DF, EVERY 4 HOUR AS NEEDED
     Route: 048
  17. KONDREMUL [Concomitant]
     Indication: CONSTIPATION
     Dosage: 15 ML, BID  (AS NEEDED)
     Route: 048
  18. CENTRUM SILVER [Concomitant]
     Dosage: UNK UKN, DAILY
     Route: 048
  19. CELLCEPT [Concomitant]
     Dosage: 1000 MG, BID
  20. ZOFRAN [Concomitant]
     Dosage: 4 MG, EVERY 6 HOURS
     Route: 048
  21. PROTONIX [Concomitant]
     Dosage: 1 DF, DAILY
     Route: 048
  22. GLYCOLAX [Concomitant]
     Indication: CONSTIPATION
     Dosage: 17 UNK, DAILY (AS NEEDED)
     Route: 048
  23. DELTASONE [Concomitant]
     Dosage: 40 MG, BID
     Route: 048
  24. DELTASONE [Concomitant]
     Dosage: 40 MG, DAILY
     Route: 048
  25. COMPAZINE [Concomitant]
     Indication: NAUSEA
     Dosage: 1 DF, EVERY 6 HOURS (AS NEEDED)
     Route: 048
  26. SUDAFED [Concomitant]
     Indication: NASAL CONGESTION
     Dosage: 1 DF,1 TAB EVERY 4 HOURS (AS NEEDED)
     Route: 048
  27. SENOKOT-S [Concomitant]
     Dosage: 2 DF, DAILY (8.6-50 MG TABLETS )
     Route: 048
  28. VALTREX [Concomitant]
     Dosage: 1 DF, BID
     Route: 048
  29. CHOLECALCIFEROL [Concomitant]
     Dosage: 1000 U, DAILY
     Route: 048
  30. VFEND [Concomitant]
     Dosage: 1 DF, EVERY 12 HOURS
  31. AMBIEN [Concomitant]
     Dosage: 1 DF, 1 TABLET NIGHTKY (AS NEEDED)
     Route: 048
  32. COUMADINE [Concomitant]
     Dosage: UNK UKN, UNK
  33. PREDNISONE [Concomitant]
     Dosage: 40 MG, BID
  34. PREDNISONE [Concomitant]
     Dosage: 40 MG, QD
     Dates: start: 20131025

REACTIONS (12)
  - Thrombocytopenia [Unknown]
  - Catheter site pain [Unknown]
  - Pneumothorax [Unknown]
  - Failure to thrive [Unknown]
  - Diastolic dysfunction [Unknown]
  - Blood glucose increased [Unknown]
  - Asthenia [Unknown]
  - Pain [Unknown]
  - Anaemia [Unknown]
  - Pulmonary fibrosis [Unknown]
  - Lumbar vertebral fracture [Recovering/Resolving]
  - Syncope [Recovering/Resolving]
